FAERS Safety Report 9813681 (Version 1)
Quarter: 2014Q1

REPORT INFORMATION
  Report Type: Spontaneous
  Country: US (occurrence: US)
  Receive Date: 20140113
  Receipt Date: 20140113
  Transmission Date: 20141002
  Serious: Yes (Death)
  Sender: FDA-Public Use
  Company Number: US-PFIZER INC-2014006100

PATIENT
  Age: 48 Year
  Sex: Male

DRUGS (3)
  1. ALPRAZOLAM [Suspect]
     Dosage: UNK
  2. SALICYLATE [Suspect]
     Dosage: UNK
  3. ACETAMINOPHEN [Suspect]
     Dosage: UNK

REACTIONS (1)
  - Death [Fatal]
